FAERS Safety Report 9016835 (Version 3)
Quarter: 2013Q1

REPORT INFORMATION
  Report Type: Spontaneous
  Country: US (occurrence: US)
  Receive Date: 20130117
  Receipt Date: 20130307
  Transmission Date: 20140127
  Serious: Yes (Hospitalization)
  Sender: FDA-Public Use
  Company Number: US-JNJFOC-20130102827

PATIENT
  Age: 53 Year
  Sex: Female
  Weight: 97.52 kg

DRUGS (7)
  1. XARELTO [Suspect]
     Indication: THROMBOSIS PROPHYLAXIS
     Route: 048
     Dates: start: 20121230, end: 20130110
  2. XARELTO [Suspect]
     Indication: KNEE ARTHROPLASTY
     Route: 048
     Dates: start: 20121230, end: 20130110
  3. TRAMADOL [Concomitant]
     Indication: PAIN
     Route: 065
     Dates: start: 201302
  4. LEVOTHYROXINE [Concomitant]
     Indication: THYROID DISORDER
     Route: 048
  5. ZOFRAN [Concomitant]
     Indication: NAUSEA
     Route: 065
     Dates: start: 201301
  6. NORCO [Concomitant]
     Indication: PAIN
     Route: 065
     Dates: start: 201301
  7. PERCOCET [Concomitant]
     Indication: PROCEDURAL PAIN
     Dosage: 5/325 MG, 1-2 TABLETS WHEN NECESSARY
     Route: 048
     Dates: start: 20121231

REACTIONS (2)
  - Venous thrombosis limb [Recovered/Resolved]
  - Deep vein thrombosis [Recovered/Resolved]
